FAERS Safety Report 11200213 (Version 2)
Quarter: 2015Q4

REPORT INFORMATION
  Report Type: Report from Study
  Country: US (occurrence: US)
  Receive Date: 20150618
  Receipt Date: 20151118
  Transmission Date: 20160304
  Serious: Yes (Hospitalization)
  Sender: FDA-Public Use
  Company Number: US-TEVA-570897USA

PATIENT
  Age: 67 Year
  Sex: Female
  Weight: 70.82 kg

DRUGS (20)
  1. HYDRALAZINE [Suspect]
     Active Substance: HYDRALAZINE HYDROCHLORIDE
     Indication: HYPERTENSION
     Dosage: 50 MILLIGRAM DAILY;
     Route: 048
     Dates: start: 2010, end: 20150427
  2. ISOSORBIDE MONONITRATE. [Concomitant]
     Active Substance: ISOSORBIDE MONONITRATE
  3. ZANTAC [Concomitant]
     Active Substance: RANITIDINE HYDROCHLORIDE
     Dates: start: 2012
  4. CALCIUM [Concomitant]
     Active Substance: CALCIUM
     Dates: start: 2013
  5. DEXILANT [Concomitant]
     Active Substance: DEXLANSOPRAZOLE
     Dates: start: 20150414
  6. HYDRALAZINE [Suspect]
     Active Substance: HYDRALAZINE HYDROCHLORIDE
     Dosage: 20 MILLIGRAM DAILY;
     Route: 048
     Dates: start: 20150502
  7. PLAVIX [Concomitant]
     Active Substance: CLOPIDOGREL BISULFATE
  8. AMITRIPTYLINE [Concomitant]
     Active Substance: AMITRIPTYLINE
     Dates: start: 2013
  9. PROAIR HFA [Concomitant]
     Active Substance: ALBUTEROL SULFATE
     Dates: start: 2011
  10. ASPIRIN. [Concomitant]
     Active Substance: ASPIRIN
  11. RANEXA [Concomitant]
     Active Substance: RANOLAZINE
  12. CRESTOR [Concomitant]
     Active Substance: ROSUVASTATIN CALCIUM
     Dates: start: 2014
  13. LASIX [Concomitant]
     Active Substance: FUROSEMIDE
  14. NITRO [Concomitant]
     Active Substance: NITROGLYCERIN
     Dates: start: 2010
  15. PROTONIX [Concomitant]
     Active Substance: PANTOPRAZOLE SODIUM
     Dates: start: 2012, end: 20150414
  16. VITAMIN D [Concomitant]
     Active Substance: CHOLECALCIFEROL
     Dates: start: 2013
  17. KLOR-CON [Concomitant]
     Active Substance: POTASSIUM CHLORIDE
     Dates: start: 2012
  18. CLARITIN [Concomitant]
     Active Substance: LORATADINE
  19. PLACEBO [Suspect]
     Active Substance: UNSPECIFIED INGREDIENT
     Indication: BACK PAIN
     Route: 065
     Dates: start: 20150319, end: 20150416
  20. LOPRESSOR [Concomitant]
     Active Substance: METOPROLOL TARTRATE
     Dates: start: 2010

REACTIONS (3)
  - Syncope [Unknown]
  - Angina pectoris [Unknown]
  - Hypotension [Unknown]

NARRATIVE: CASE EVENT DATE: 20150420
